FAERS Safety Report 14831596 (Version 3)
Quarter: 2018Q2

REPORT INFORMATION
  Report Type: Spontaneous
  Country: US (occurrence: US)
  Receive Date: 20180501
  Receipt Date: 20180611
  Transmission Date: 20180711
  Serious: No
  Sender: FDA-Public Use
  Company Number: US-PFIZER INC-2018152936

PATIENT
  Age: 77 Year
  Sex: Female
  Weight: 48 kg

DRUGS (2)
  1. FEMRING [Concomitant]
     Active Substance: ESTRADIOL ACETATE
     Dosage: UNK, EVERY 3 MONTHS (PUTS A NEW ONE IN EVERY 3 MONTHS)
  2. IBRANCE [Suspect]
     Active Substance: PALBOCICLIB
     Indication: OVARIAN CANCER
     Dosage: 125 MG, CYCLIC (1 TABLET A DAY FOR 21 DAYS AND THEN 7 DAYS OFF)
     Dates: start: 201802, end: 2018

REACTIONS (5)
  - Malaise [Unknown]
  - Vomiting [Recovered/Resolved]
  - Product use in unapproved indication [Unknown]
  - Nausea [Recovered/Resolved]
  - Asthenia [Unknown]

NARRATIVE: CASE EVENT DATE: 2018
